FAERS Safety Report 19055942 (Version 1)
Quarter: 2021Q1

REPORT INFORMATION
  Report Type: Spontaneous
  Country: US (occurrence: US)
  Receive Date: 20210325
  Receipt Date: 20210325
  Transmission Date: 20210420
  Serious: Yes (Other)
  Sender: FDA-Public Use
  Company Number: US-SA-2021SA098003

PATIENT
  Sex: Female

DRUGS (1)
  1. GOLD BOND EXTRA STRENGTH POWDER [Suspect]
     Active Substance: MENTHOL\ZINC OXIDE
     Dosage: UNK
     Dates: start: 1996

REACTIONS (1)
  - Ovarian cancer [Unknown]
